FAERS Safety Report 5324872-1 (Version None)
Quarter: 2007Q2

REPORT INFORMATION
  Report Type: 
  Country: None (occurrence: None)
  Receive Date: 20070515
  Receipt Date: 20070504
  Transmission Date: 20071010
  Serious: Yes (Hospitalization)
  Sender: FDA-Public Use
  Company Number: AU-BRISTOL-MYERS SQUIBB COMPANY-13778196

PATIENT
  Age: 65 Year
  Sex: Female

DRUGS (1)
  1. METFORMIN HCL [Suspect]
     Indication: DIABETES MELLITUS
     Route: 048

REACTIONS (3)
  - ABDOMINAL PAIN UPPER [None]
  - ANION GAP INCREASED [None]
  - GAMMA-GLUTAMYLTRANSFERASE INCREASED [None]
